FAERS Safety Report 17866035 (Version 1)
Quarter: 2020Q2

REPORT INFORMATION
  Report Type: Spontaneous
  Country: ES (occurrence: ES)
  Receive Date: 20200605
  Receipt Date: 20200605
  Transmission Date: 20200714
  Serious: Yes (Hospitalization)
  Sender: FDA-Public Use
  Company Number: ES-JUBILANT CADISTA PHARMACEUTICALS-2020JUB00192

PATIENT
  Age: 87 Year
  Sex: Female

DRUGS (2)
  1. PREDNISONE. [Suspect]
     Active Substance: PREDNISONE
     Indication: TUBULOINTERSTITIAL NEPHRITIS
     Dosage: 45 MG, 1X/DAY
     Route: 065
     Dates: start: 2018
  2. UNSPECIFIED ^POLY-MEDICATION^ [Concomitant]
     Route: 065

REACTIONS (2)
  - Pulmonary cavitation [Unknown]
  - Bronchopulmonary aspergillosis [Unknown]
